FAERS Safety Report 15098307 (Version 2)
Quarter: 2018Q3

REPORT INFORMATION
  Report Type: Spontaneous
  Country: US (occurrence: US)
  Receive Date: 20180702
  Receipt Date: 20180921
  Transmission Date: 20181010
  Serious: No
  Sender: FDA-Public Use
  Company Number: US-IGSA-SR10006285

PATIENT
  Sex: Female

DRUGS (10)
  1. MUCINEX D [Concomitant]
     Active Substance: GUAIFENESIN\PSEUDOEPHEDRINE HYDROCHLORIDE
  2. TRAZODONE HYDROCHLORIDE. [Concomitant]
     Active Substance: TRAZODONE HYDROCHLORIDE
     Dosage: 150 MG, UNK
  3. ALBUTEROL SULFATE. [Concomitant]
     Active Substance: ALBUTEROL SULFATE
  4. GAMUNEX?C [Suspect]
     Active Substance: HUMAN IMMUNOGLOBULIN G
     Indication: HYPOGAMMAGLOBULINAEMIA
     Dosage: 30 G, Q.M.T.
     Route: 042
     Dates: start: 2018, end: 2018
  5. FLUOCINONIDE. [Concomitant]
     Active Substance: FLUOCINONIDE
  6. LEVOTHYROXIN [Concomitant]
     Active Substance: LEVOTHYROXINE
     Dosage: 125 ?G, UNK
  7. LIPITOR [Concomitant]
     Active Substance: ATORVASTATIN CALCIUM
     Dosage: 20 MG, UNK
  8. AMLODIPINE BESILATE [Concomitant]
     Active Substance: AMLODIPINE BESYLATE
     Dosage: 10 MG, UNK
  9. SERTRALINE HCL [Concomitant]
     Active Substance: SERTRALINE HYDROCHLORIDE
     Dosage: 100 MG, UNK
  10. XANAX [Concomitant]
     Active Substance: ALPRAZOLAM
     Dosage: 1 MG, UNK

REACTIONS (2)
  - Wheezing [Recovered/Resolved]
  - Fluid overload [Recovered/Resolved]

NARRATIVE: CASE EVENT DATE: 2018
